FAERS Safety Report 22222292 (Version 1)
Quarter: 2023Q2

REPORT INFORMATION
  Report Type: Spontaneous
  Country: CA (occurrence: CA)
  Receive Date: 20230418
  Receipt Date: 20230418
  Transmission Date: 20230721
  Serious: Yes (Other)
  Sender: FDA-Public Use
  Company Number: CA-SAMSUNG BIOEPIS-SB-2023-09823

PATIENT
  Age: 28 Year
  Sex: Female
  Weight: 64 kg

DRUGS (3)
  1. INFLIXIMAB [Suspect]
     Active Substance: INFLIXIMAB
     Indication: Colitis ulcerative
     Dosage: UNKNOWN
     Route: 042
  2. INFLIXIMAB [Suspect]
     Active Substance: INFLIXIMAB
     Route: 042
  3. RUBELLA VIRUS VACCINE LIVE NOS [Concomitant]
     Active Substance: RUBELLA VIRUS STRAIN WISTAR RA 27/3 LIVE ANTIGEN
     Indication: Rubella immunisation
     Dosage: UNKNOWN
     Route: 065

REACTIONS (9)
  - Colitis ulcerative [Recovered/Resolved]
  - Condition aggravated [Recovered/Resolved]
  - General physical health deterioration [Recovered/Resolved]
  - Malaise [Recovered/Resolved]
  - Suspected COVID-19 [Recovered/Resolved]
  - Sinusitis [Recovered/Resolved]
  - Inappropriate schedule of product administration [Recovered/Resolved]
  - Intentional product use issue [Recovered/Resolved]
  - Off label use [Recovered/Resolved]
